FAERS Safety Report 21988036 (Version 1)
Quarter: 2023Q1

REPORT INFORMATION
  Report Type: Other
  Country: US (occurrence: None)
  Receive Date: 20230214
  Receipt Date: 20230214
  Transmission Date: 20230417
  Serious: Yes (Hospitalization)
  Sender: FDA-Public Use
  Company Number: US-ROCHE-3281713

PATIENT
  Age: 31 Year
  Sex: Female
  Weight: 86.260 kg

DRUGS (2)
  1. OCREVUS [Suspect]
     Active Substance: OCRELIZUMAB
     Indication: Relapsing-remitting multiple sclerosis
     Route: 042
     Dates: start: 20211223
  2. NUVARING [Concomitant]
     Active Substance: ETHINYL ESTRADIOL\ETONOGESTREL
     Dosage: 1 POINT SOMETHING MG PER DAY
     Route: 067

REACTIONS (6)
  - Feeling abnormal [Unknown]
  - Rash [Unknown]
  - Gingival swelling [Unknown]
  - Facial pain [Unknown]
  - Headache [Recovered/Resolved]
  - Herpes zoster [Unknown]

NARRATIVE: CASE EVENT DATE: 20221106
